FAERS Safety Report 18147058 (Version 1)
Quarter: 2020Q3

REPORT INFORMATION
  Report Type: Spontaneous
  Country: US (occurrence: US)
  Receive Date: 20200813
  Receipt Date: 20200813
  Transmission Date: 20201103
  Serious: No
  Sender: FDA-Public Use
  Company Number: US-MAYNE PHARMA-2019MYN000856

PATIENT

DRUGS (2)
  1. BENADRYL [Concomitant]
     Active Substance: DIPHENHYDRAMINE HYDROCHLORIDE
     Indication: PRODUCT USED FOR UNKNOWN INDICATION
     Dosage: AS NEEDED
     Route: 061
     Dates: start: 20191125
  2. CLONIDINE. [Suspect]
     Active Substance: CLONIDINE
     Indication: BLOOD PRESSURE ABNORMAL
     Dosage: 0.2 MG, QD
     Route: 062
     Dates: start: 20191125

REACTIONS (6)
  - Blood pressure increased [Not Recovered/Not Resolved]
  - Application site erythema [Not Recovered/Not Resolved]
  - Inappropriate schedule of product administration [Unknown]
  - Application site pruritus [Recovered/Resolved]
  - Urticaria [Not Recovered/Not Resolved]
  - Dermatitis contact [Not Recovered/Not Resolved]
